FAERS Safety Report 25013201 (Version 1)
Quarter: 2025Q1

REPORT INFORMATION
  Report Type: Spontaneous
  Country: US (occurrence: US)
  Receive Date: 20250226
  Receipt Date: 20250226
  Transmission Date: 20250409
  Serious: No
  Sender: BIOGEN
  Company Number: US-BIOGEN-2025BI01301929

PATIENT
  Sex: Male

DRUGS (1)
  1. VUMERITY [Suspect]
     Active Substance: DIROXIMEL FUMARATE
     Indication: Multiple sclerosis
     Route: 050
     Dates: start: 20211117

REACTIONS (4)
  - Multiple sclerosis [Unknown]
  - Multiple sclerosis relapse [Unknown]
  - Hypertension [Unknown]
  - Blood cholesterol increased [Unknown]
